FAERS Safety Report 20598222 (Version 1)
Quarter: 2022Q1

REPORT INFORMATION
  Report Type: Spontaneous
  Country: US (occurrence: US)
  Receive Date: 20220315
  Receipt Date: 20220315
  Transmission Date: 20220423
  Serious: Yes (Hospitalization, Other)
  Sender: FDA-Public Use
  Company Number: US-INCYTE CORPORATION-2022IN002496

PATIENT

DRUGS (1)
  1. JAKAFI [Suspect]
     Active Substance: RUXOLITINIB
     Dosage: 10 MILLIGRAM, BID
     Route: 048
     Dates: start: 20211210

REACTIONS (4)
  - Internal haemorrhage [Recovering/Resolving]
  - Renal impairment [Recovering/Resolving]
  - Nephropathy toxic [Recovering/Resolving]
  - Cystitis [Recovering/Resolving]
